FAERS Safety Report 6288151-0 (Version None)
Quarter: 2009Q3

REPORT INFORMATION
  Report Type: 
  Country: None (occurrence: None)
  Receive Date: 20090721
  Receipt Date: 20080717
  Transmission Date: 20100115
  Serious: Yes (Other)
  Sender: FDA-Public Use
  Company Number: 1-16411424

PATIENT
  Age: 68 Year
  Sex: Female
  Weight: 68.4932 kg

DRUGS (9)
  1. METRONIDAZOLE [Suspect]
     Indication: CLOSTRIDIUM DIFFICILE COLITIS
     Dosage: 500 MG, TWICE DAILY, ORAL
     Route: 048
     Dates: start: 20080505, end: 20080629
  2. ASPIRIN [Concomitant]
  3. METOPROLOL SUCCINATE [Concomitant]
  4. NORVASC [Concomitant]
  5. PLAVIX [Concomitant]
  6. NIASPAN [Concomitant]
  7. MAVIK [Concomitant]
  8. UNSPECIFIED STATIN [Concomitant]
  9. CALCIUM SUPPLEMENT [Concomitant]

REACTIONS (1)
  - NEUROPATHY PERIPHERAL [None]
